FAERS Safety Report 13612680 (Version 1)
Quarter: 2017Q2

REPORT INFORMATION
  Report Type: Spontaneous
  Country: US (occurrence: US)
  Receive Date: 20170605
  Receipt Date: 20170605
  Transmission Date: 20170830
  Serious: Yes (Other)
  Sender: FDA-Public Use
  Company Number: US-BAYER-2017-100774

PATIENT
  Age: 87 Year
  Sex: Female
  Weight: 53.97 kg

DRUGS (15)
  1. UBIQUINOL [Concomitant]
     Active Substance: UBIQUINOL
     Dosage: 1 DF, OM
  2. VITAMIN D3 [Concomitant]
     Active Substance: CHOLECALCIFEROL
  3. FUROSEMIDE [FUROSEMIDE] [Concomitant]
     Active Substance: FUROSEMIDE
  4. BENAZEPRIL [Concomitant]
     Active Substance: BENAZEPRIL HYDROCHLORIDE
     Dosage: 1 DF, QD
  5. MICROGENICS PROBIOTIC 8 [Concomitant]
     Active Substance: LACTOBACILLUS ACIDOPHILUS
     Dosage: ONCE OR TWICE ,QD
  6. MIRALAX [Suspect]
     Active Substance: POLYETHYLENE GLYCOL 3350
     Indication: GASTROINTESTINAL DISORDER
     Route: 048
     Dates: end: 20170526
  7. BAYER LOW DOSE [Suspect]
     Active Substance: ASPIRIN
     Dosage: UNK
  8. METHYLDOPA. [Concomitant]
     Active Substance: METHYLDOPA
     Dosage: 2 DF, BID
  9. POTASSIUM CHLORIDE. [Concomitant]
     Active Substance: POTASSIUM CHLORIDE
     Dosage: 1 DF, QD
  10. OMEGA 3 FISH OIL [Concomitant]
     Active Substance: FISH OIL\OMEGA-3 FATTY ACIDS
     Dosage: 1 DF, OM
  11. MAGNESIUM [Concomitant]
     Active Substance: MAGNESIUM
     Dosage: 1 DF, QD
  12. BAYER LOW DOSE [Suspect]
     Active Substance: ASPIRIN
     Dosage: 1 DF, UNK,3 TIMES A WEEK
     Route: 048
     Dates: end: 20170526
  13. MELATONIN [Concomitant]
     Active Substance: MELATONIN
  14. NIFEDIPINE. [Concomitant]
     Active Substance: NIFEDIPINE
     Dosage: 1 DF, QD
  15. XANAX [Concomitant]
     Active Substance: ALPRAZOLAM

REACTIONS (9)
  - Drug use disorder [Unknown]
  - Product use issue [Unknown]
  - Bowel movement irregularity [Unknown]
  - Abdominal discomfort [Unknown]
  - Faeces hard [Unknown]
  - Constipation [Unknown]
  - Fear [Unknown]
  - Dizziness [Unknown]
  - Swelling [Unknown]
